FAERS Safety Report 9736117 (Version 2)
Quarter: 2014Q1

REPORT INFORMATION
  Report Type: Spontaneous
  Country: NO (occurrence: NO)
  Receive Date: 20131206
  Receipt Date: 20140116
  Transmission Date: 20141002
  Serious: Yes (Death, Life-Threatening)
  Sender: FDA-Public Use
  Company Number: NO-GLAXOSMITHKLINE-B0951220A

PATIENT
  Age: 20 Year
  Sex: Female

DRUGS (24)
  1. LAMICTAL [Suspect]
     Indication: DEPRESSION
     Route: 065
  2. SAROTEX [Suspect]
     Indication: DEPRESSION
     Route: 065
  3. SEROQUEL [Suspect]
     Indication: DEPRESSION
     Route: 065
  4. NOBLIGAN [Suspect]
     Indication: DEPRESSION
     Route: 065
  5. CATAPRESAN [Suspect]
     Indication: DEPRESSION
     Route: 065
  6. CIPRALEX [Suspect]
     Indication: DEPRESSION
     Route: 065
  7. ATARAX [Suspect]
     Indication: DEPRESSION
     Route: 065
  8. PINEX FORTE [Suspect]
     Indication: DEPRESSION
     Route: 065
  9. OXYNORM [Suspect]
     Indication: DEPRESSION
     Route: 065
  10. TRUXAL [Suspect]
     Indication: PRODUCT USED FOR UNKNOWN INDICATION
     Route: 065
  11. IMOVANE [Suspect]
     Indication: DEPRESSION
     Route: 048
  12. ORFIRIL [Suspect]
     Indication: DEPRESSION
     Route: 065
  13. NOBLIGAN [Suspect]
     Indication: DEPRESSION
     Route: 065
  14. CIPRAMIL [Suspect]
     Indication: PRODUCT USED FOR UNKNOWN INDICATION
     Route: 065
  15. RIVOTRIL [Suspect]
     Indication: DEPRESSION
     Route: 065
  16. NOZINAN [Suspect]
     Indication: DEPRESSION
     Route: 065
  17. SOBRIL [Suspect]
     Indication: PRODUCT USED FOR UNKNOWN INDICATION
     Route: 065
  18. VIVAL [Suspect]
     Indication: DEPRESSION
     Route: 065
  19. REMERON [Suspect]
     Indication: DEPRESSION
     Route: 065
  20. TRAMADOL [Suspect]
     Indication: DEPRESSION
  21. CODEINE + PARACETAMOL [Concomitant]
  22. CYANOCOBALAMIN [Concomitant]
  23. OXAZEPAM [Concomitant]
  24. HEROIN [Concomitant]

REACTIONS (2)
  - Completed suicide [Fatal]
  - Self injurious behaviour [Unknown]
